FAERS Safety Report 9519041 (Version 1)
Quarter: 2013Q3

REPORT INFORMATION
  Report Type: Spontaneous
  Country: BR (occurrence: BR)
  Receive Date: 20130912
  Receipt Date: 20130912
  Transmission Date: 20140515
  Serious: Yes (Other)
  Sender: FDA-Public Use
  Company Number: BR-PFIZER INC-2013259446

PATIENT
  Age: 30 Year
  Sex: Male

DRUGS (2)
  1. VIBRAMICINA [Suspect]
     Indication: BALANOPOSTHITIS
     Dosage: 100 MG, 2X/DAY
     Route: 048
     Dates: start: 20130905
  2. NEOMYCIN SULFATE [Suspect]
     Indication: BALANOPOSTHITIS
     Dosage: UNK
     Route: 061
     Dates: start: 20130905

REACTIONS (3)
  - Penile haemorrhage [Not Recovered/Not Resolved]
  - Swelling [Not Recovered/Not Resolved]
  - Rash pustular [Not Recovered/Not Resolved]
